FAERS Safety Report 8745869 (Version 2)
Quarter: 2013Q4

REPORT INFORMATION
  Report Type: Spontaneous
  Country: GB (occurrence: GB)
  Receive Date: 20120827
  Receipt Date: 20131031
  Transmission Date: 20140711
  Serious: Yes (Life-Threatening)
  Sender: FDA-Public Use
  Company Number: GB-009507513-1208GBR007912

PATIENT
  Age: 47 Year
  Sex: Female
  Weight: 80 kg

DRUGS (2)
  1. ESMERON [Suspect]
     Indication: HYPOTONIA
     Dosage: 50 MG, UNK
     Route: 042
     Dates: start: 20120509, end: 20120509
  2. MORPHINE [Suspect]
     Indication: PERIOPERATIVE ANALGESIA
     Dosage: 10 MG, UNK
     Route: 042
     Dates: start: 20120509, end: 20120509

REACTIONS (4)
  - Cardiac arrest [Recovered/Resolved]
  - Oxygen saturation abnormal [Recovered/Resolved]
  - Pulseless electrical activity [Recovered/Resolved]
  - Anaphylactic reaction [Recovered/Resolved]
